FAERS Safety Report 4919379-7 (Version None)
Quarter: 2006Q1

REPORT INFORMATION
  Report Type: 
  Country: None (occurrence: None)
  Receive Date: 20060216
  Receipt Date: 20060201
  Transmission Date: 20060701
  Serious: Yes (Hospitalization)
  Sender: FDA-Public Use
  Company Number: GB200602000337

PATIENT
  Age: 65 Year
  Sex: Female

DRUGS (1)
  1. GEMZAR [Suspect]
     Indication: PANCREATIC CARCINOMA
     Dosage: 1482 MG
     Dates: start: 20060106

REACTIONS (3)
  - BILE DUCT OBSTRUCTION [None]
  - CONVULSION [None]
  - SEPSIS [None]
